FAERS Safety Report 21612653 (Version 4)
Quarter: 2023Q1

REPORT INFORMATION
  Report Type: Report from Study
  Country: US (occurrence: US)
  Receive Date: 20221118
  Receipt Date: 20230120
  Transmission Date: 20230418
  Serious: No
  Sender: FDA-Public Use
  Company Number: US-002147023-NVSC2022US259805

PATIENT
  Sex: Female

DRUGS (1)
  1. KISQALI [Suspect]
     Active Substance: RIBOCICLIB
     Indication: Product used for unknown indication
     Dosage: UNK
     Route: 048

REACTIONS (9)
  - Feeling jittery [Unknown]
  - Depressed mood [Unknown]
  - Energy increased [Recovered/Resolved with Sequelae]
  - White blood cell count decreased [Unknown]
  - Rash [Unknown]
  - Asthenia [Unknown]
  - Constipation [Unknown]
  - Alopecia [Unknown]
  - Rash pruritic [Unknown]
